FAERS Safety Report 8248168-3 (Version None)
Quarter: 2012Q1

REPORT INFORMATION
  Report Type: 
  Country: None (occurrence: None)
  Receive Date: 20120330
  Receipt Date: 20120323
  Transmission Date: 20120608
  Serious: Yes (Other)
  Sender: FDA-Public Use
  Company Number: FR-B.I. PHARMACEUTICALS,INC./RIDGEFIELD-2012-BP-05908YA

PATIENT
  Sex: Male

DRUGS (2)
  1. TAMSULOSIN HCL [Suspect]
     Indication: PROSTATIC ADENOMA
     Route: 048
     Dates: start: 20111208, end: 20120118
  2. ACETAMINOPHEN [Concomitant]

REACTIONS (3)
  - JAUNDICE [None]
  - HEPATITIS [None]
  - HYPERBILIRUBINAEMIA [None]
